FAERS Safety Report 13235513 (Version 1)
Quarter: 2017Q1

REPORT INFORMATION
  Report Type: Spontaneous
  Country: IT (occurrence: IT)
  Receive Date: 20170215
  Receipt Date: 20170215
  Transmission Date: 20170428
  Serious: Yes (Hospitalization)
  Sender: FDA-Public Use
  Company Number: IT-PFIZER INC-2017064809

PATIENT
  Age: 47 Year
  Sex: Male

DRUGS (5)
  1. DOXORUBICIN HCL [Suspect]
     Active Substance: DOXORUBICIN HYDROCHLORIDE
     Indication: NON-HODGKIN^S LYMPHOMA
     Dosage: 75 MG, CYCLIC
     Route: 042
     Dates: start: 20160907, end: 20161205
  2. PREDNISONE. [Concomitant]
     Active Substance: PREDNISONE
  3. RITUXIMAB [Suspect]
     Active Substance: RITUXIMAB
     Indication: NON-HODGKIN^S LYMPHOMA
     Dosage: 550 MG, CYCLIC
     Route: 042
     Dates: start: 20160907, end: 20161205
  4. CYCLOPHOSPHAMIDE. [Suspect]
     Active Substance: CYCLOPHOSPHAMIDE
     Indication: NON-HODGKIN^S LYMPHOMA
     Dosage: 1150 MG, CYCLIC
     Route: 042
     Dates: start: 20160907, end: 20161205
  5. VINCRISTINE SULFATE. [Suspect]
     Active Substance: VINCRISTINE SULFATE
     Indication: NON-HODGKIN^S LYMPHOMA
     Dosage: 2 MG, CYCLIC
     Route: 042
     Dates: start: 20160907, end: 20161205

REACTIONS (2)
  - Thrombophlebitis [Recovering/Resolving]
  - Venous thrombosis [Recovering/Resolving]

NARRATIVE: CASE EVENT DATE: 20161104
